FAERS Safety Report 7167158-5 (Version None)
Quarter: 2010Q4

REPORT INFORMATION
  Report Type: 
  Country: None (occurrence: None)
  Receive Date: 20101213
  Receipt Date: 20101213
  Transmission Date: 20110411
  Serious: No
  Sender: FDA-Public Use
  Company Number: None

PATIENT
  Age: 23 Year
  Sex: Female
  Weight: 45.3597 kg

DRUGS (1)
  1. ACCUTANE [Suspect]
     Indication: ACNE

REACTIONS (11)
  - ACNE [None]
  - ALOPECIA [None]
  - CONDITION AGGRAVATED [None]
  - CYSTITIS INTERSTITIAL [None]
  - DRUG INEFFECTIVE [None]
  - FAMILY STRESS [None]
  - HYPERAESTHESIA [None]
  - IMPAIRED WORK ABILITY [None]
  - OCULAR HYPERAEMIA [None]
  - SCAR [None]
  - SOCIAL PROBLEM [None]
